FAERS Safety Report 8974179 (Version 1)
Quarter: 2012Q4

REPORT INFORMATION
  Report Type: Spontaneous
  Country: US (occurrence: None)
  Receive Date: 20121217
  Receipt Date: 20121217
  Transmission Date: 20130627
  Serious: Yes (Other)
  Sender: FDA-Public Use
  Company Number: None

PATIENT
  Age: 26 Year
  Sex: Male
  Weight: 79.38 kg

DRUGS (1)
  1. ZIPRASIDONE [Suspect]
     Indication: IRRITABLE
     Route: 048

REACTIONS (6)
  - Dizziness [None]
  - Vision blurred [None]
  - Somnolence [None]
  - Hypoaesthesia [None]
  - Abnormal dreams [None]
  - Rash [None]
